FAERS Safety Report 25989171 (Version 1)
Quarter: 2025Q4

REPORT INFORMATION
  Report Type: Spontaneous
  Country: CN (occurrence: CN)
  Receive Date: 20251103
  Receipt Date: 20251103
  Transmission Date: 20260118
  Serious: Yes (Other)
  Sender: BAXTER
  Company Number: None

PATIENT
  Age: 8 Year
  Sex: Male
  Weight: 25.5 kg

DRUGS (4)
  1. CYCLOPHOSPHAMIDE [Suspect]
     Active Substance: CYCLOPHOSPHAMIDE
     Indication: Neoplasm malignant
     Dosage: 0.435 G, QD, D1-D5
     Route: 041
     Dates: start: 20251010, end: 20251015
  2. SODIUM CHLORIDE [Suspect]
     Active Substance: SODIUM CHLORIDE
     Dosage: 100 ML, QD D1-D5 (WITH CYCLOPHOSPHAMIDE)
     Route: 041
     Dates: start: 20251010, end: 20251015
  3. SODIUM CHLORIDE [Suspect]
     Active Substance: SODIUM CHLORIDE
     Dosage: 396 ML, QD  D1-D5 (WITH ETOPOSIDE)
     Route: 041
     Dates: start: 20251010, end: 20251015
  4. ETOPOSIDE [Suspect]
     Active Substance: ETOPOSIDE
     Indication: Neoplasm malignant
     Dosage: 4.95 ML, QD, D1-D5
     Route: 041
     Dates: start: 20251010, end: 20251015

REACTIONS (1)
  - Leukopenia [Recovering/Resolving]

NARRATIVE: CASE EVENT DATE: 20251016
